FAERS Safety Report 9889009 (Version 1)
Quarter: 2014Q1

REPORT INFORMATION
  Report Type: Spontaneous
  Country: US (occurrence: None)
  Receive Date: 20140210
  Receipt Date: 20140210
  Transmission Date: 20141002
  Serious: Yes (Other)
  Sender: FDA-Public Use
  Company Number: None

PATIENT
  Age: 9 Year
  Sex: Female
  Weight: 34.02 kg

DRUGS (2)
  1. ORAJEL [Suspect]
     Indication: ORAL PAIN
     Dates: start: 20140209
  2. ORAJEL [Suspect]
     Indication: MEDICAL DEVICE PAIN
     Dates: start: 20140209

REACTIONS (3)
  - Dizziness [None]
  - Skin discolouration [None]
  - Loss of consciousness [None]
